FAERS Safety Report 5910071-9 (Version None)
Quarter: 2008Q4

REPORT INFORMATION
  Report Type: 
  Country: None (occurrence: None)
  Receive Date: 20081007
  Receipt Date: 20070830
  Transmission Date: 20090506
  Serious: Yes (Other)
  Sender: FDA-Public Use
  Company Number: US-ASTRAZENECA-2007UW20647

PATIENT
  Age: 53 Year
  Sex: Female
  Weight: 75.7 kg

DRUGS (4)
  1. ARIMIDEX [Suspect]
     Indication: BREAST CANCER FEMALE
     Route: 048
  2. ELAVIL [Concomitant]
  3. PREVACID [Concomitant]
  4. WHELCHOL [Concomitant]
     Dosage: TOOK ONLY THREE DOSES

REACTIONS (4)
  - ARTHRALGIA [None]
  - BLOOD CHOLESTEROL INCREASED [None]
  - CATARACT [None]
  - WEIGHT INCREASED [None]
